FAERS Safety Report 10496736 (Version 2)
Quarter: 2015Q1

REPORT INFORMATION
  Report Type: Spontaneous
  Country: IT (occurrence: IT)
  Receive Date: 20141006
  Receipt Date: 20150120
  Transmission Date: 20150720
  Serious: Yes (Hospitalization)
  Sender: FDA-Public Use
  Company Number: IT-ROCHE-1469641

PATIENT
  Age: 67 Year
  Sex: Male

DRUGS (11)
  1. MYOCET [Suspect]
     Active Substance: DOXORUBICIN
     Indication: NON-HODGKIN^S LYMPHOMA
     Route: 042
     Dates: start: 20131213, end: 20140513
  2. PANTORC [Concomitant]
     Active Substance: PANTOPRAZOLE SODIUM
     Dosage: 28 TABLETS
     Route: 065
  3. ROCEFIN [Concomitant]
     Active Substance: CEFTRIAXONE SODIUM
     Dosage: 1 G/3.5 MLPOWDER AND SOLVENT FOR SOLUTION FOR INJECTION FOR 1 BOTTLE OF POWDER + 1 VIAL OF SOLVENT 3
     Route: 030
  4. VINCRISTINE SULPHATE [Suspect]
     Active Substance: VINCRISTINE SULFATE
     Indication: NON-HODGKIN^S LYMPHOMA
     Route: 042
     Dates: start: 20131213, end: 20140513
  5. DELTACORTENE [Concomitant]
     Active Substance: PREDNISONE
     Dosage: 10 TABLETS
     Route: 065
  6. ENDOXAN BAXTER [Suspect]
     Active Substance: CYCLOPHOSPHAMIDE
     Indication: NON-HODGKIN^S LYMPHOMA
     Route: 042
     Dates: start: 20131213, end: 20140513
  7. MABTHERA [Suspect]
     Active Substance: RITUXIMAB
     Indication: NON-HODGKIN^S LYMPHOMA
     Route: 042
     Dates: start: 20131213, end: 20140513
  8. RAMIPRIL. [Concomitant]
     Active Substance: RAMIPRIL
  9. LEVOFLOXACIN. [Concomitant]
     Active Substance: LEVOFLOXACIN
  10. BARACLUDE [Concomitant]
     Active Substance: ENTECAVIR
     Dosage: FOR 30 DAYS
     Route: 050
  11. TAVOR [Concomitant]
     Active Substance: LORAZEPAM
     Dosage: 20 TABLETS
     Route: 065

REACTIONS (1)
  - Congestive cardiomyopathy [Recovering/Resolving]

NARRATIVE: CASE EVENT DATE: 20140930
